FAERS Safety Report 15608570 (Version 1)
Quarter: 2018Q4

REPORT INFORMATION
  Report Type: Spontaneous
  Country: US (occurrence: US)
  Receive Date: 20181107
  Receipt Date: 20181107
  Transmission Date: 20190205
  Serious: Yes (Hospitalization)
  Sender: FDA-Public Use
  Company Number: None

PATIENT
  Age: 73 Year
  Sex: Male
  Weight: 96.3 kg

DRUGS (3)
  1. DEXAMETHASONE. [Suspect]
     Active Substance: DEXAMETHASONE
     Indication: PRODUCT USED FOR UNKNOWN INDICATION
     Dates: end: 20181006
  2. VELCADE [Suspect]
     Active Substance: BORTEZOMIB
     Dates: end: 20181005
  3. LENALIDOMIDE  (CC-5013) [Suspect]
     Active Substance: LENALIDOMIDE
     Dates: end: 20181008

REACTIONS (12)
  - Dehydration [None]
  - Hypotension [None]
  - Acute kidney injury [None]
  - Asthenia [None]
  - Hypophagia [None]
  - Decreased appetite [None]
  - Confusional state [None]
  - Pneumonia [None]
  - Diarrhoea [None]
  - Anal incontinence [None]
  - Unresponsive to stimuli [None]
  - Renal tubular necrosis [None]

NARRATIVE: CASE EVENT DATE: 20181010
